FAERS Safety Report 13849370 (Version 2)
Quarter: 2017Q3

REPORT INFORMATION
  Report Type: Spontaneous
  Country: JP (occurrence: JP)
  Receive Date: 20170809
  Receipt Date: 20170824
  Transmission Date: 20171127
  Serious: Yes (Other)
  Sender: FDA-Public Use
  Company Number: JP-SUN PHARMACEUTICAL INDUSTRIES LTD-2017RR-147040

PATIENT
  Age: 54 Year
  Sex: Female

DRUGS (2)
  1. IMATINIB [Suspect]
     Active Substance: IMATINIB
     Indication: GASTROINTESTINAL STROMAL TUMOUR
     Dosage: 400 MG, DAILY
     Route: 065
     Dates: start: 201505
  2. IMATINIB [Suspect]
     Active Substance: IMATINIB
     Dosage: 300 MG, DAILY
     Dates: start: 201506

REACTIONS (3)
  - Drug resistance [Unknown]
  - Diarrhoea [Unknown]
  - Disease progression [Recovered/Resolved]
